FAERS Safety Report 10310227 (Version 2)
Quarter: 2014Q3

REPORT INFORMATION
  Report Type: Spontaneous
  Country: CR (occurrence: None)
  Receive Date: 20140715
  Receipt Date: 20140723
  Transmission Date: 20150326
  Serious: Yes (Other)
  Sender: FDA-Public Use
  Company Number: 7305937

PATIENT
  Age: 5 Year
  Sex: Female

DRUGS (1)
  1. EUTIROX (LEVOTHYROXINE SODIUM) [Suspect]
     Active Substance: LEVOTHYROXINE SODIUM
     Indication: CONGENITAL HYPOTHYROIDISM

REACTIONS (3)
  - Abdominal pain [None]
  - Diarrhoea [None]
  - Rectal haemorrhage [None]

NARRATIVE: CASE EVENT DATE: 201406
